FAERS Safety Report 8834332 (Version 1)
Quarter: 2012Q4

REPORT INFORMATION
  Report Type: 
  Country: US (occurrence: US)
  Receive Date: 20121010
  Receipt Date: 20121010
  Transmission Date: 20130627
  Serious: No
  Sender: FDA-Public Use
  Company Number: US-ASTRAZENECA-2012SE75330

PATIENT
  Age: 58 Year
  Sex: Female

DRUGS (3)
  1. ATACAND [Suspect]
     Route: 048
  2. XANAX [Suspect]
     Route: 065
  3. DEPAKOTE [Concomitant]

REACTIONS (1)
  - Panic attack [Unknown]
